FAERS Safety Report 7333422-X (Version None)
Quarter: 2011Q1

REPORT INFORMATION
  Report Type: 
  Country: None (occurrence: None)
  Receive Date: 20110304
  Receipt Date: 20110221
  Transmission Date: 20110831
  Serious: Yes (Other)
  Sender: FDA-Public Use
  Company Number: US-BAYER-2011-016845

PATIENT
  Sex: Male

DRUGS (1)
  1. ALKA-SELTZER PLUS COLD + COUGH [Suspect]
     Indication: NASOPHARYNGITIS
     Route: 048

REACTIONS (2)
  - EAR DISCOMFORT [None]
  - HYPOACUSIS [None]
